FAERS Safety Report 15126436 (Version 1)
Quarter: 2018Q3

REPORT INFORMATION
  Report Type: Spontaneous
  Country: PT (occurrence: PT)
  Receive Date: 20180710
  Receipt Date: 20180710
  Transmission Date: 20181010
  Serious: Yes (Other)
  Sender: FDA-Public Use
  Company Number: PT-MYLANLABS-2018M1049483

PATIENT
  Age: 52 Year
  Sex: Male

DRUGS (2)
  1. EFAVIRENZ/EMTRICITABINE/TENOFOVIR DISOPROXIL FUMARATE [Suspect]
     Active Substance: EFAVIRENZ\EMTRICITABINE\TENOFOVIR DISOPROXIL FUMARATE
     Indication: HEPATITIS B
     Dosage: EFAVIRENZ 600 MG, EMTRICITABINE 200 MG AND TENOFOVIR DISOPROXIL FUMARATE 245 MG
     Route: 065
     Dates: start: 201206
  2. ABACAVIR. [Suspect]
     Active Substance: ABACAVIR
     Indication: HEPATITIS B
     Route: 065

REACTIONS (2)
  - Drug interaction [Unknown]
  - Therapeutic response decreased [Unknown]
